FAERS Safety Report 10755425 (Version 1)
Quarter: 2015Q1

REPORT INFORMATION
  Report Type: Spontaneous
  Country: US (occurrence: None)
  Receive Date: 20150123
  Receipt Date: 20150123
  Transmission Date: 20150721
  Serious: Yes (Other)
  Sender: FDA-Public Use
  Company Number: TPA2013A00994

PATIENT
  Age: 55 Year
  Sex: Female
  Weight: 37.65 kg

DRUGS (2)
  1. PREVACID SOLUTAB [Suspect]
     Active Substance: LANSOPRAZOLE
     Indication: PEPTIC ULCER
     Route: 048
     Dates: start: 2007, end: 201211
  2. PREVACID SOLUTAB [Suspect]
     Active Substance: LANSOPRAZOLE
     Indication: DYSPHAGIA
     Route: 048
     Dates: start: 2007, end: 201211

REACTIONS (5)
  - Syncope [None]
  - Weight decreased [None]
  - Off label use [None]
  - Dyspnoea [None]
  - Hypotension [None]
